FAERS Safety Report 7376409-3 (Version None)
Quarter: 2011Q1

REPORT INFORMATION
  Report Type: 
  Country: None (occurrence: None)
  Receive Date: 20110325
  Receipt Date: 20110301
  Transmission Date: 20110831
  Serious: Yes (Hospitalization, Other)
  Sender: FDA-Public Use
  Company Number: US-BAYER-201035453NA

PATIENT
  Sex: Female
  Weight: 112.47 kg

DRUGS (11)
  1. ACETAMINOPHEN W/ CODEINE [Concomitant]
  2. UNCODEABLE ^UNCLASSIFIABLE^ [Concomitant]
     Dosage: UNK
     Dates: start: 20010101
  3. INDOMETHACIN [Concomitant]
     Dosage: UNK
     Dates: start: 20081208
  4. IBUPROFEN [Concomitant]
     Dosage: UNK
     Dates: start: 20000101
  5. ACETAMINOPHEN AND HYDROCODONE BITARTRATE [Concomitant]
     Dosage: UNK
     Dates: start: 20081201
  6. SULFAMETHOXAZOLE [Concomitant]
     Dosage: UNK
     Dates: start: 20081208
  7. METRONIDAZOLE [Concomitant]
     Dosage: UNK
     Dates: start: 20081211
  8. CEPHALEXIN [Concomitant]
     Dosage: UNK
     Dates: start: 20090101
  9. YASMIN [Suspect]
     Indication: PREMENSTRUAL SYNDROME
  10. YASMIN [Suspect]
     Indication: ORAL CONTRACEPTION
     Dates: start: 20080701, end: 20090401
  11. MULTI-VITAMIN [Concomitant]

REACTIONS (2)
  - PULMONARY EMBOLISM [None]
  - PAIN [None]
